FAERS Safety Report 23504877 (Version 1)
Quarter: 2024Q1

REPORT INFORMATION
  Report Type: Spontaneous
  Country: CN (occurrence: CN)
  Receive Date: 20240209
  Receipt Date: 20240209
  Transmission Date: 20240410
  Serious: No
  Sender: FDA-Public Use
  Company Number: None

PATIENT
  Age: 14 Year
  Sex: Female
  Weight: 58 kg

DRUGS (4)
  1. GABAPENTIN [Suspect]
     Active Substance: GABAPENTIN
     Indication: Complex regional pain syndrome
     Dosage: 300 MILLIGRAM, TID (EVERY 8 HOUR)
     Route: 065
  2. Flurbiprofen Ester [Concomitant]
     Indication: Analgesic therapy
     Dosage: UNK
     Route: 065
     Dates: start: 20221030
  3. IBUPROFEN [Concomitant]
     Active Substance: IBUPROFEN
     Indication: Analgesic therapy
     Dosage: UNK
     Route: 048
     Dates: start: 20221030
  4. MUPIROCIN [Concomitant]
     Active Substance: MUPIROCIN
     Indication: Scar
     Dosage: UNK
     Route: 065
     Dates: start: 20221014

REACTIONS (2)
  - Dizziness [Unknown]
  - Somnolence [Unknown]

NARRATIVE: CASE EVENT DATE: 20221101
